FAERS Safety Report 13438421 (Version 3)
Quarter: 2017Q3

REPORT INFORMATION
  Report Type: Spontaneous
  Country: US (occurrence: US)
  Receive Date: 20170413
  Receipt Date: 20170705
  Transmission Date: 20171127
  Serious: Yes (Hospitalization)
  Sender: FDA-Public Use
  Company Number: US-NOVOPROD-539989

PATIENT
  Age: 32 Year
  Sex: Female
  Weight: 68.27 kg

DRUGS (3)
  1. SAXENDA [Suspect]
     Active Substance: LIRAGLUTIDE
     Dosage: 0.6 MG, QD
     Route: 058
  2. SAXENDA [Suspect]
     Active Substance: LIRAGLUTIDE
     Indication: OBESITY
     Dosage: 0.6 MG, QD
     Route: 058
     Dates: start: 201610
  3. SAXENDA [Suspect]
     Active Substance: LIRAGLUTIDE
     Dosage: 1.2 MG, QD
     Dates: end: 20170329

REACTIONS (5)
  - Dyspnoea [Unknown]
  - Drug dose omission [Recovered/Resolved]
  - Biliary colic [Recovering/Resolving]
  - Hepatobiliary scan abnormal [Recovering/Resolving]
  - Diarrhoea [Unknown]

NARRATIVE: CASE EVENT DATE: 2017
